FAERS Safety Report 6795770-1 (Version None)
Quarter: 2010Q2

REPORT INFORMATION
  Report Type: 
  Country: None (occurrence: None)
  Receive Date: 20100625
  Receipt Date: 20100621
  Transmission Date: 20101027
  Serious: Yes (Hospitalization)
  Sender: FDA-Public Use
  Company Number: US-BRISTOL-MYERS SQUIBB COMPANY-15159775

PATIENT
  Age: 43 Year
  Sex: Male
  Weight: 91 kg

DRUGS (3)
  1. TAXOL [Suspect]
     Indication: OESOPHAGEAL ADENOCARCINOMA
     Dosage: RECENT INFU ON 10-MAY-2010.ON DAY 22 NO TRETMENT,29 DAY TREATMENT WAS REDUCED TO 91MG.
     Dates: start: 20100426
  2. CISPLATIN [Suspect]
     Indication: OESOPHAGEAL ADENOCARCINOMA
     Dosage: RECENT INFUSION ON 10-MAY-2010.ON DAY 22 NO TRETMENT,ON 29 TREATMENT WAS REDUCED TO 45MG
     Dates: start: 20100426
  3. RADIATION THERAPY [Suspect]
     Indication: OESOPHAGEAL ADENOCARCINOMA
     Dosage: 1DOSAGEFORM=27GY,LAST INFU 14-MAY-2010,NUMBER OF FRACTION:15,ELASPSED DAYS:18.EXTERNAL BEAM,IMRT
     Dates: start: 20100426

REACTIONS (4)
  - ABDOMINAL PAIN [None]
  - DYSPHAGIA [None]
  - NAUSEA [None]
  - VOMITING [None]
